FAERS Safety Report 5170877-3 (Version None)
Quarter: 2006Q4

REPORT INFORMATION
  Report Type: 
  Country: None (occurrence: None)
  Receive Date: 20061205
  Receipt Date: 20061205
  Transmission Date: 20070319
  Serious: Yes (Hospitalization)
  Sender: FDA-Public Use
  Company Number: None

PATIENT
  Age: 50 Year
  Sex: Female

DRUGS (5)
  1. TEMODAR [Suspect]
     Indication: BONE SARCOMA
     Dosage: 100MG   3 WEEKS ON 1 WEEK     PO
     Route: 048
     Dates: start: 20060807, end: 20060828
  2. TEMODAR [Suspect]
     Indication: METASTATIC NEOPLASM
     Dosage: 100MG   3 WEEKS ON 1 WEEK     PO
     Route: 048
     Dates: start: 20060807, end: 20060828
  3. XELODA [Suspect]
     Indication: BONE SARCOMA
     Dosage: 2000MG   3 WEEKS ON 1 WEEK     PO
     Route: 048
     Dates: start: 20060807, end: 20060828
  4. XELODA [Suspect]
     Indication: METASTATIC NEOPLASM
     Dosage: 2000MG   3 WEEKS ON 1 WEEK     PO
     Route: 048
     Dates: start: 20060807, end: 20060828
  5. THALOMID [Concomitant]

REACTIONS (6)
  - ASCITES [None]
  - DEEP VEIN THROMBOSIS [None]
  - FLANK PAIN [None]
  - PLEURAL EFFUSION [None]
  - PULMONARY EMBOLISM [None]
  - WAIST CIRCUMFERENCE INCREASED [None]
